FAERS Safety Report 5033230-9 (Version None)
Quarter: 2006Q2

REPORT INFORMATION
  Report Type: 
  Country: None (occurrence: None)
  Receive Date: 20060620
  Receipt Date: 20060609
  Transmission Date: 20061013
  Serious: Yes (Hospitalization)
  Sender: FDA-Public Use
  Company Number: CHWYE713209JUN06

PATIENT
  Age: 77 Year
  Sex: Female

DRUGS (12)
  1. TAZOBAC (PIPERACILLIN/TAZOBACTAM, INJECTION) [Suspect]
     Indication: DIVERTICULAR PERFORATION
     Route: 042
     Dates: start: 20060513
  2. NOVALGIN (METAMIZOLE SODIUM) [Concomitant]
  3. AGAROL (PARAFFIN, LIQUID/PHENOLPHTALEIN) [Concomitant]
  4. CITALOPRAM HYDROBROMIDE [Concomitant]
  5. REMERON [Concomitant]
  6. NEURONTIN [Concomitant]
  7. FEMARA [Concomitant]
  8. MS CONTIN [Concomitant]
  9. HEPARIN [Concomitant]
  10. LEXOTANIL (BROMAZEPAM) [Concomitant]
  11. LEVOTHYROXINE SODIUM [Concomitant]
  12. NEXIUM [Concomitant]

REACTIONS (4)
  - CONDITION AGGRAVATED [None]
  - DELIRIUM [None]
  - ENCEPHALOPATHY [None]
  - SOMNOLENCE [None]
